FAERS Safety Report 4440658-4 (Version None)
Quarter: 2004Q3

REPORT INFORMATION
  Report Type: 
  Country: None (occurrence: None)
  Receive Date: 20040728
  Receipt Date: 20040317
  Transmission Date: 20050211
  Serious: No
  Sender: FDA-Public Use
  Company Number: USA040259984

PATIENT
  Age: 10 Year
  Sex: Female
  Weight: 39 kg

DRUGS (1)
  1. STRATTERA [Suspect]
     Indication: ATTENTION DEFICIT/HYPERACTIVITY DISORDER
     Dosage: 40 MG/D
     Dates: start: 20040213

REACTIONS (4)
  - ABNORMAL BEHAVIOUR [None]
  - NAUSEA [None]
  - RETCHING [None]
  - VOMITING [None]
